FAERS Safety Report 5955471-6 (Version None)
Quarter: 2008Q4

REPORT INFORMATION
  Report Type: 
  Country: None (occurrence: None)
  Receive Date: 20081031
  Receipt Date: 20080723
  Transmission Date: 20090506
  Serious: No
  Sender: FDA-Public Use
  Company Number: 2008PV036257

PATIENT
  Age: 60 Year
  Sex: Female

DRUGS (8)
  1. SYMLIN [Suspect]
     Indication: TYPE 2 DIABETES MELLITUS
     Dosage: 60 MCG; TID; SC
     Dates: start: 20080719
  2. SYMLIN [Suspect]
     Indication: TYPE 2 DIABETES MELLITUS
     Dosage: 180 MCG; BID; SC, 90 MCG; BID; SC
     Route: 058
     Dates: start: 20080719
  3. JANUVAMET [Suspect]
     Indication: TYPE 2 DIABETES MELLITUS
     Dosage: BID
     Dates: start: 20080501
  4. NEBIVOLOL [Concomitant]
  5. ALLOPURINOL [Concomitant]
  6. JANUVIA [Concomitant]
  7. METFORMIN HCL [Concomitant]
  8. CRESTOR [Concomitant]

REACTIONS (5)
  - ASTHENIA [None]
  - DYSPNOEA [None]
  - FATIGUE [None]
  - FLUID RETENTION [None]
  - SOMNOLENCE [None]
